FAERS Safety Report 6817731 (Version 4)
Quarter: 2013Q1

REPORT INFORMATION
  Report Type: Spontaneous
  Country: US (occurrence: US)
  Receive Date: 20081121
  Receipt Date: 20130226
  Transmission Date: 20140127
  Serious: Yes (Hospitalization, Disabling, Other)
  Sender: FDA-Public Use
  Company Number: US-JNJFOC-20080703297

PATIENT
  Age: 63 None
  Sex: Male
  Weight: 79.38 kg

DRUGS (13)
  1. LEVAQUIN [Suspect]
     Indication: PNEUMONIA
     Route: 048
     Dates: start: 20080623, end: 20080701
  2. ASPIRIN [Suspect]
     Indication: PROPHYLAXIS
     Route: 048
  3. PREDNISONE [Suspect]
     Indication: PRODUCT USED FOR UNKNOWN INDICATION
     Route: 048
  4. ADVAIR [Concomitant]
     Indication: PNEUMONIA
     Route: 055
     Dates: start: 200807
  5. FISH OIL [Concomitant]
     Indication: PROPHYLAXIS
     Route: 048
  6. LIPITOR [Concomitant]
     Indication: BLOOD CHOLESTEROL
     Route: 048
  7. MULTIVITAMIN [Concomitant]
     Indication: PROPHYLAXIS
     Route: 048
  8. GABAPENTIN [Concomitant]
     Indication: NEUROPATHY PERIPHERAL
  9. METROPROLOL [Concomitant]
     Indication: CARDIAC DISORDER
     Route: 048
  10. MIRALAX [Concomitant]
     Indication: CONSTIPATION
     Route: 048
  11. OXYCOTIN [Concomitant]
     Indication: PAIN
     Route: 048
  12. BACTRIM [Concomitant]
     Route: 048
  13. AREDIA [Concomitant]
     Indication: BONE DISORDER
     Route: 065

REACTIONS (5)
  - Tendon rupture [Recovering/Resolving]
  - Plasmacytoma [Recovered/Resolved]
  - Atrophy [Not Recovered/Not Resolved]
  - Deep vein thrombosis [Unknown]
  - Haemoglobin decreased [Recovering/Resolving]
